FAERS Safety Report 11540140 (Version 1)
Quarter: 2015Q3

REPORT INFORMATION
  Report Type: Spontaneous
  Country: DE (occurrence: DE)
  Receive Date: 20150923
  Receipt Date: 20150923
  Transmission Date: 20151125
  Serious: Yes (Death, Hospitalization)
  Sender: FDA-Public Use
  Company Number: DE-CELGENE-062-50794-12121764

PATIENT
  Age: 58 Year
  Sex: Female

DRUGS (1)
  1. VIDAZA [Suspect]
     Active Substance: AZACITIDINE
     Indication: MYELODYSPLASTIC SYNDROME
     Dosage: 7X
     Route: 065
     Dates: start: 201208, end: 201211

REACTIONS (2)
  - Pneumonia [Fatal]
  - Injection site infection [Recovered/Resolved]

NARRATIVE: CASE EVENT DATE: 20121023
